FAERS Safety Report 14534242 (Version 1)
Quarter: 2018Q1

REPORT INFORMATION
  Report Type: Report from Study
  Country: AR (occurrence: AR)
  Receive Date: 20180215
  Receipt Date: 20180215
  Transmission Date: 20180509
  Serious: Yes (Other)
  Sender: FDA-Public Use
  Company Number: PHHY2018AR011230

PATIENT
  Sex: Female

DRUGS (2)
  1. ILARIS [Suspect]
     Active Substance: CANAKINUMAB
     Dosage: UNK
     Route: 065
     Dates: start: 20180119
  2. ILARIS [Suspect]
     Active Substance: CANAKINUMAB
     Indication: MUCKLE-WELLS SYNDROME
     Dosage: 150 MG, Q2MO
     Route: 065

REACTIONS (5)
  - Hypoacusis [Not Recovered/Not Resolved]
  - Urticaria [Recovered/Resolved]
  - Mastitis [Recovered/Resolved]
  - Malaise [Not Recovered/Not Resolved]
  - Pain [Recovered/Resolved]
